FAERS Safety Report 7647006-7 (Version None)
Quarter: 2011Q3

REPORT INFORMATION
  Report Type: 
  Country: None (occurrence: None)
  Receive Date: 20110801
  Receipt Date: 20110725
  Transmission Date: 20111222
  Serious: Yes (Other)
  Sender: FDA-Public Use
  Company Number: US-JNJFOC-20110402148

PATIENT
  Age: 39 Year
  Sex: Male
  Weight: 83.92 kg

DRUGS (2)
  1. PEPCID COMPLETE [Suspect]
     Route: 048
  2. PEPCID COMPLETE [Suspect]
     Indication: GASTROOESOPHAGEAL REFLUX DISEASE
     Route: 048
     Dates: start: 20110328, end: 20110328

REACTIONS (2)
  - TOOTH INJURY [None]
  - TABLET PHYSICAL ISSUE [None]
